FAERS Safety Report 4595141-2 (Version None)
Quarter: 2005Q1

REPORT INFORMATION
  Report Type: 
  Country: None (occurrence: None)
  Receive Date: 20050224
  Receipt Date: 20040311
  Transmission Date: 20050727
  Serious: Yes (Other)
  Sender: FDA-Public Use
  Company Number: GXKR2004CZ00708

PATIENT
  Age: 54 Year
  Sex: Female

DRUGS (4)
  1. ORTANOL (NGX) (OMEPRAZOLE) CAPSULE [Suspect]
     Indication: HIATUS HERNIA
     Dosage: 40 MG, ORAL
     Route: 048
     Dates: start: 20040308, end: 20040312
  2. DUPHALAC [Concomitant]
  3. APO-PINDOL (PINDOLOL) [Concomitant]
  4. LEXAURIN (BROMAZEPAM) [Concomitant]

REACTIONS (5)
  - ABDOMINAL PAIN UPPER [None]
  - FATIGUE [None]
  - FEELING COLD [None]
  - NAUSEA [None]
  - SOMNOLENCE [None]
